FAERS Safety Report 8746525 (Version 11)
Quarter: 2015Q2

REPORT INFORMATION
  Report Type: Spontaneous
  Country: US (occurrence: US)
  Receive Date: 20120827
  Receipt Date: 20150601
  Transmission Date: 20150821
  Serious: Yes (Hospitalization, Other)
  Sender: FDA-Public Use
  Company Number: US-009507513-1207USA009228

PATIENT
  Age: 32 Year
  Sex: Female
  Weight: 104.31 kg

DRUGS (1)
  1. IMPLANON [Suspect]
     Active Substance: ETONOGESTREL
     Indication: CONTRACEPTION
     Dosage: UNK
     Route: 059
     Dates: start: 20110204

REACTIONS (20)
  - Nerve injury [Unknown]
  - Medical device complication [Not Recovered/Not Resolved]
  - Device difficult to use [Recovered/Resolved]
  - Skin warm [Unknown]
  - Nausea [Not Recovered/Not Resolved]
  - Implant site swelling [Not Recovered/Not Resolved]
  - Device difficult to use [Not Recovered/Not Resolved]
  - Pain in extremity [Unknown]
  - Surgery [Unknown]
  - Breast tenderness [Not Recovered/Not Resolved]
  - Menorrhagia [Recovered/Resolved]
  - Hypoaesthesia [Not Recovered/Not Resolved]
  - Increased appetite [Unknown]
  - Incorrect drug administration duration [Unknown]
  - Device dislocation [Unknown]
  - Implant site pain [Not Recovered/Not Resolved]
  - Implant site bruising [Not Recovered/Not Resolved]
  - Surgery [Unknown]
  - Pain in extremity [Unknown]
  - Neck pain [Unknown]

NARRATIVE: CASE EVENT DATE: 20110204
